FAERS Safety Report 13378337 (Version 2)
Quarter: 2017Q2

REPORT INFORMATION
  Report Type: Report from Study
  Country: US (occurrence: BR)
  Receive Date: 20170328
  Receipt Date: 20170411
  Transmission Date: 20170830
  Serious: Yes (Other)
  Sender: FDA-Public Use
  Company Number: US-SUNOVION-2017SUN001298

PATIENT
  Age: 70 Year
  Sex: Female
  Weight: 78 kg

DRUGS (2)
  1. INDACATEROL AND GLYCOPYRROLATE [Suspect]
     Active Substance: GLYCOPYRROLATE\INDACATEROL MALEATE
     Indication: ASTHMA
     Dosage: 1 DF (110/50 UG), QD
     Route: 055
  2. INDACATEROL AND GLYCOPYRROLATE [Suspect]
     Active Substance: GLYCOPYRROLATE\INDACATEROL MALEATE
     Indication: DYSPNOEA
     Dosage: 1 DF (110/50 UG), QD (IN THE MORNING)
     Route: 065
     Dates: start: 20170206

REACTIONS (7)
  - Musculoskeletal pain [Not Recovered/Not Resolved]
  - Patella fracture [Recovering/Resolving]
  - Ligament rupture [Recovered/Resolved]
  - Product use issue [Unknown]
  - Fall [Unknown]
  - Mobility decreased [Unknown]
  - Upper limb fracture [Recovering/Resolving]

NARRATIVE: CASE EVENT DATE: 20170206
